FAERS Safety Report 4549875-6 (Version None)
Quarter: 2004Q4

REPORT INFORMATION
  Report Type: 
  Country: None (occurrence: None)
  Receive Date: 20041227
  Receipt Date: 20041005
  Transmission Date: 20050328
  Serious: No
  Sender: FDA-Public Use
  Company Number: 04P-163-0276205-00

PATIENT
  Age: 83 Year
  Sex: Male
  Weight: 53.978 kg

DRUGS (11)
  1. HUMIRA [Suspect]
     Indication: RHEUMATOID ARTHRITIS
     Dosage: 40 MG, 1 IN 2 WK, SUBCUTANEOUS
     Route: 058
     Dates: start: 20040901
  2. METHOTREXATE SODIUM [Concomitant]
  3. WARFARIN SODIUM [Concomitant]
  4. QUINAPRIL HYDROCHLORIDE [Concomitant]
  5. CALCIUM CARBONATE [Concomitant]
  6. LISINOPRIL [Concomitant]
  7. WARFARIN SODIUM [Concomitant]
  8. TOPROL-XL [Concomitant]
  9. OMEPRAZOLE [Concomitant]
  10. MG CHLORIDE [Concomitant]
  11. LEVOTHYROXINE [Concomitant]

REACTIONS (1)
  - DRUG INEFFECTIVE [None]
